FAERS Safety Report 8988639 (Version 1)
Quarter: 2012Q4

REPORT INFORMATION
  Report Type: 
  Country: DE (occurrence: DE)
  Receive Date: 20121227
  Receipt Date: 20121227
  Transmission Date: 20130627
  Serious: Yes (Other)
  Sender: FDA-Public Use
  Company Number: DE-ELI_LILLY_AND_COMPANY-DE201212007040

PATIENT
  Sex: Male

DRUGS (2)
  1. GEMCITABINE HYDROCHLORIDE [Suspect]
     Indication: GERM CELL CANCER
     Dosage: 1000 mg/m2, other
  2. OXALIPLATIN [Concomitant]
     Indication: GERM CELL CANCER
     Dosage: 130 mg/m2, other

REACTIONS (2)
  - Febrile neutropenia [Unknown]
  - Bone marrow failure [Unknown]
